FAERS Safety Report 7104725-9 (Version None)
Quarter: 2010Q4

REPORT INFORMATION
  Report Type: 
  Country: None (occurrence: None)
  Receive Date: 20101116
  Receipt Date: 20101104
  Transmission Date: 20110411
  Serious: Yes (Other)
  Sender: FDA-Public Use
  Company Number: US-SHIRE-SPV1-2010-01965

PATIENT
  Sex: Male

DRUGS (5)
  1. INTUNIV [Suspect]
     Indication: PSYCHOMOTOR HYPERACTIVITY
     Dosage: 3 MG, 1X/DAY:QD
     Route: 048
     Dates: start: 20100521, end: 20100602
  2. INTUNIV [Suspect]
     Indication: IMPULSE-CONTROL DISORDER
     Dosage: 2 MG, 1X/DAY:QD
     Route: 048
     Dates: start: 20100501, end: 20100520
  3. INTUNIV [Suspect]
     Dosage: 1 MG, 1X/DAY:QD
     Route: 048
     Dates: start: 20100507, end: 20100501
  4. RISPEROPROL [Concomitant]
     Indication: PRODUCT USED FOR UNKNOWN INDICATION
     Dosage: 0.5 MG, 1X/DAY:QD, AT HOURS OF SLEEP
     Route: 048
     Dates: start: 20091109
  5. UNSPECIFIED NEBULIZER [Concomitant]
     Indication: PRODUCT USED FOR UNKNOWN INDICATION
     Dosage: UNK, AS REQ'D
     Route: 065

REACTIONS (6)
  - AFFECT LABILITY [None]
  - AGITATION [None]
  - ANGER [None]
  - HALLUCINATION [None]
  - IMPULSE-CONTROL DISORDER [None]
  - SELF ESTEEM DECREASED [None]
